FAERS Safety Report 8157167-1 (Version None)
Quarter: 2012Q1

REPORT INFORMATION
  Report Type: 
  Country: None (occurrence: None)
  Receive Date: 20120222
  Receipt Date: 20120216
  Transmission Date: 20120608
  Serious: Yes (Hospitalization)
  Sender: FDA-Public Use
  Company Number: PHHO2009US10466

PATIENT
  Sex: Male
  Weight: 68 kg

DRUGS (2)
  1. LBH589 [Suspect]
     Indication: PROSTATE CANCER METASTATIC
     Dosage: 20 MG/M2, UNK
     Route: 042
     Dates: start: 20090428, end: 20090428
  2. DOCETAXEL [Suspect]
     Dosage: 75 MG/M2, UNK

REACTIONS (3)
  - VENTRICULAR EXTRASYSTOLES [None]
  - ELECTROCARDIOGRAM ST SEGMENT DEPRESSION [None]
  - ELECTROCARDIOGRAM QT PROLONGED [None]
